FAERS Safety Report 25528767 (Version 2)
Quarter: 2025Q3

REPORT INFORMATION
  Report Type: Spontaneous
  Country: US (occurrence: US)
  Receive Date: 20250708
  Receipt Date: 20250819
  Transmission Date: 20251020
  Serious: No
  Sender: MERCK SHARP & DOHME LLC
  Company Number: US-009507513-2300395

PATIENT
  Sex: Female
  Weight: 60.3 kg

DRUGS (20)
  1. SOTATERCEPT [Suspect]
     Active Substance: SOTATERCEPT
     Dates: start: 202506
  2. SOTATERCEPT [Suspect]
     Active Substance: SOTATERCEPT
  3. SOTATERCEPT [Suspect]
     Active Substance: SOTATERCEPT
  4. SOTATERCEPT [Suspect]
     Active Substance: SOTATERCEPT
  5. TYVASO DPI [Suspect]
     Active Substance: TREPROSTINIL
     Indication: Pulmonary arterial hypertension
     Dosage: 48 UG, FOUR TIMES A DAY (QID)
     Route: 055
     Dates: start: 20221114
  6. PFIZER-BIONTECH COVID-19 VACCINE [Concomitant]
     Active Substance: TOZINAMERAN
  7. ACYCLOVIR [Concomitant]
     Active Substance: ACYCLOVIR
  8. ZYRTEC [Concomitant]
     Active Substance: CETIRIZINE HYDROCHLORIDE
  9. PROBIOTICS NOS [Concomitant]
     Active Substance: PROBIOTICS NOS
  10. PERCOCET [Concomitant]
     Active Substance: ACETAMINOPHEN\OXYCODONE HYDROCHLORIDE
  11. LETAIRIS [Concomitant]
     Active Substance: AMBRISENTAN
  12. MINERALS\VITAMINS [Concomitant]
     Active Substance: MINERALS\VITAMINS
     Route: 048
  13. MUCINEX [Concomitant]
     Active Substance: GUAIFENESIN
  14. BORIC ACID [Concomitant]
     Active Substance: BORIC ACID
  15. BUMETANIDE [Concomitant]
     Active Substance: BUMETANIDE
  16. KLONOPIN [Concomitant]
     Active Substance: CLONAZEPAM
  17. TRINTELLIX [Concomitant]
     Active Substance: VORTIOXETINE HYDROBROMIDE
  18. WELLBUTRIN XL [Concomitant]
     Active Substance: BUPROPION HYDROCHLORIDE
  19. VITAMINS [Concomitant]
     Active Substance: VITAMINS
  20. SPIRONOLACTONE [Concomitant]
     Active Substance: SPIRONOLACTONE

REACTIONS (4)
  - Injection site pruritus [Unknown]
  - Rash macular [Unknown]
  - Injection site erythema [Unknown]
  - Rash pruritic [Unknown]

NARRATIVE: CASE EVENT DATE: 20250101
